FAERS Safety Report 13513931 (Version 1)
Quarter: 2017Q2

REPORT INFORMATION
  Report Type: Spontaneous
  Country: US (occurrence: US)
  Receive Date: 20170504
  Receipt Date: 20170504
  Transmission Date: 20170830
  Serious: No
  Sender: FDA-Public Use
  Company Number: US-PFIZER INC-2017188778

PATIENT
  Sex: Female

DRUGS (1)
  1. XELJANZ [Suspect]
     Active Substance: TOFACITINIB CITRATE
     Dosage: 5 MG, 2X/DAY

REACTIONS (10)
  - Myofascial pain syndrome [Recovering/Resolving]
  - C-reactive protein increased [Recovering/Resolving]
  - Arthralgia [Recovering/Resolving]
  - Fatigue [Recovering/Resolving]
  - Joint swelling [Recovering/Resolving]
  - Swelling [Recovering/Resolving]
  - Myalgia [Recovering/Resolving]
  - Drug effect incomplete [Recovering/Resolving]
  - Connective tissue disorder [Recovering/Resolving]
  - Musculoskeletal stiffness [Recovering/Resolving]
